FAERS Safety Report 25777961 (Version 1)
Quarter: 2025Q3

REPORT INFORMATION
  Report Type: Spontaneous
  Country: CA (occurrence: CA)
  Receive Date: 20250909
  Receipt Date: 20250909
  Transmission Date: 20251021
  Serious: Yes (Other)
  Sender: ASSERTIO THERAPEUTICS
  Company Number: CA-ASSERTIO THERAPEUTICS, INC.-CA-2025AST000418

PATIENT

DRUGS (2)
  1. DICLOFENAC POTASSIUM [Suspect]
     Active Substance: DICLOFENAC POTASSIUM
     Indication: Psoriatic arthropathy
     Route: 065
  2. ERELZI [Suspect]
     Active Substance: ETANERCEPT-SZZS
     Indication: Psoriatic arthropathy
     Route: 065

REACTIONS (2)
  - Pain [Unknown]
  - Psoriatic arthropathy [Unknown]
